FAERS Safety Report 8215361-5 (Version None)
Quarter: 2012Q1

REPORT INFORMATION
  Report Type: 
  Country: None (occurrence: None)
  Receive Date: 20120316
  Receipt Date: 20120306
  Transmission Date: 20120608
  Serious: Yes (Hospitalization, Other)
  Sender: FDA-Public Use
  Company Number: DE-PFIZER INC-2012054213

PATIENT
  Age: 77 Year
  Sex: Female

DRUGS (5)
  1. ARICEPT [Concomitant]
     Dosage: 5 MG, DAILY
  2. AMLODIPINE [Concomitant]
     Dosage: 5 MG, DAILY
  3. SIMVASTATIN [Concomitant]
     Dosage: 20 MG, DAILY
  4. RAMIPRIL [Suspect]
     Indication: PRODUCT USED FOR UNKNOWN INDICATION
     Dosage: 10 MILLIGRAM(S);DAILY
     Route: 048
  5. VENLAFAXINE HYDROCHLORIDE [Suspect]
     Indication: DEPRESSIVE SYMPTOM
     Dosage: 75 MILLIGRAM(S);DAILY
     Route: 048
     Dates: start: 20111213, end: 20111216

REACTIONS (5)
  - VOMITING [None]
  - HYPONATRAEMIA [None]
  - NAUSEA [None]
  - DISORIENTATION [None]
  - BLOOD PRESSURE INCREASED [None]
